FAERS Safety Report 22149991 (Version 1)
Quarter: 2023Q1

REPORT INFORMATION
  Report Type: Spontaneous
  Country: US (occurrence: US)
  Receive Date: 20230329
  Receipt Date: 20230329
  Transmission Date: 20230418
  Serious: No
  Sender: FDA-Public Use
  Company Number: US-TAKEDA-2023TUS030266

PATIENT

DRUGS (1)
  1. VYVANSE [Suspect]
     Active Substance: LISDEXAMFETAMINE DIMESYLATE
     Indication: Product used for unknown indication
     Dosage: 60 MILLIGRAM
     Route: 065

REACTIONS (7)
  - Therapeutic product effect variable [Unknown]
  - Hunger [Unknown]
  - Lethargy [Unknown]
  - Disturbance in attention [Unknown]
  - Concussion [Unknown]
  - Pelvic congestion [Not Recovered/Not Resolved]
  - Loss of personal independence in daily activities [Unknown]
